FAERS Safety Report 7288471-7 (Version None)
Quarter: 2011Q1

REPORT INFORMATION
  Report Type: 
  Country: None (occurrence: None)
  Receive Date: 20110211
  Receipt Date: 20110208
  Transmission Date: 20110831
  Serious: Yes (Life-Threatening, Hospitalization)
  Sender: FDA-Public Use
  Company Number: B0698573A

PATIENT
  Sex: Male

DRUGS (7)
  1. STILNOX [Concomitant]
     Route: 065
  2. AUGMENTIN [Suspect]
     Dosage: 1G THREE TIMES PER DAY
     Route: 048
  3. COUMADIN [Suspect]
     Dosage: 3MG PER DAY
     Route: 048
     Dates: start: 20100930, end: 20110101
  4. ACETAMINOPHEN [Concomitant]
     Route: 065
  5. LASIX [Concomitant]
     Route: 065
  6. LEVOTHYROX [Concomitant]
     Route: 065
  7. CORDARONE [Concomitant]
     Route: 065

REACTIONS (4)
  - HAEMOTHORAX [None]
  - ANAEMIA [None]
  - RENAL HAEMATOMA [None]
  - ABDOMINAL WALL HAEMATOMA [None]
